FAERS Safety Report 21091482 (Version 2)
Quarter: 2022Q4

REPORT INFORMATION
  Report Type: Spontaneous
  Country: US (occurrence: US)
  Receive Date: 20220717
  Receipt Date: 20221020
  Transmission Date: 20230112
  Serious: No
  Sender: FDA-Public Use
  Company Number: US-BRISTOL-MYERS SQUIBB COMPANY-2022-074392

PATIENT
  Age: 60 Year
  Sex: Female

DRUGS (1)
  1. ORENCIA [Suspect]
     Active Substance: ABATACEPT
     Indication: Rheumatoid arthritis
     Dosage: BATCH NUMBER: ACD3408 EXPIRE DATE: 03/31/2024
     Route: 058
     Dates: start: 20220209

REACTIONS (4)
  - Hypertension [Unknown]
  - Fatigue [Unknown]
  - Depression [Unknown]
  - Alopecia [Unknown]
